FAERS Safety Report 6615825-1 (Version None)
Quarter: 2010Q1

REPORT INFORMATION
  Report Type: 
  Country: None (occurrence: None)
  Receive Date: 20100305
  Receipt Date: 20100226
  Transmission Date: 20100710
  Serious: Yes (Hospitalization)
  Sender: FDA-Public Use
  Company Number: IT-BRISTOL-MYERS SQUIBB COMPANY-14995831

PATIENT
  Age: 71 Year
  Sex: Male
  Weight: 48 kg

DRUGS (3)
  1. CETUXIMAB [Suspect]
     Indication: NON-SMALL CELL LUNG CANCER
     Dosage: 5MG/ML RECENT INF 03FEB2010 INTERRUPTED ON 17-FEB-2010 RESTARTED ON 22-FEB-2010
     Route: 042
     Dates: start: 20091210
  2. CISPLATIN [Suspect]
     Indication: NON-SMALL CELL LUNG CANCER
     Dosage: DAY 1 OF 21 DAY CYC RECENT INF: 03FEB2010
     Route: 042
     Dates: start: 20091210
  3. GEMCITABINE [Suspect]
     Indication: NON-SMALL CELL LUNG CANCER
     Dosage: ON DAY 1,8 OF 21 DAY CYC RECENT INF: 03FEB2010
     Route: 042
     Dates: start: 20091210

REACTIONS (1)
  - BONE PAIN [None]
